FAERS Safety Report 5267820-5 (Version None)
Quarter: 2007Q1

REPORT INFORMATION
  Report Type: 
  Country: None (occurrence: None)
  Receive Date: 20070316
  Receipt Date: 20070307
  Transmission Date: 20070707
  Serious: Yes (Hospitalization, Other)
  Sender: FDA-Public Use
  Company Number: US-PFIZER INC-2007018370

PATIENT
  Sex: Female
  Weight: 63.5 kg

DRUGS (7)
  1. CHANTIX [Suspect]
     Indication: EX-SMOKER
     Dates: start: 20070224, end: 20070304
  2. ALL OTHER THERAPEUTIC PRODUCTS [Concomitant]
  3. CELEXA [Concomitant]
  4. TEGRETOL [Concomitant]
  5. ASTELIN [Concomitant]
  6. ALLERGY MEDICATION [Concomitant]
  7. ANTIHYPERTENSIVES [Concomitant]

REACTIONS (2)
  - CONFUSIONAL STATE [None]
  - CONVULSION [None]
